FAERS Safety Report 9925769 (Version 1)
Quarter: 2014Q1

REPORT INFORMATION
  Report Type: Spontaneous
  Country: US (occurrence: None)
  Receive Date: 20140221
  Receipt Date: 20140221
  Transmission Date: 20141002
  Serious: Yes (Hospitalization, Other)
  Sender: FDA-Public Use
  Company Number: US-ZYDUS-002542

PATIENT
  Age: 61 Year
  Sex: Female

DRUGS (1)
  1. GABAPENTINE [Suspect]

REACTIONS (3)
  - Neurotoxicity [None]
  - Somnolence [None]
  - Diabetic ketoacidosis [None]
